FAERS Safety Report 5720005-8 (Version None)
Quarter: 2008Q2

REPORT INFORMATION
  Report Type: 
  Country: None (occurrence: None)
  Receive Date: 20080424
  Receipt Date: 20080424
  Transmission Date: 20081010
  Serious: No
  Sender: FDA-Public Use
  Company Number: None

PATIENT
  Age: 77 Year
  Sex: Male

DRUGS (1)
  1. OXYBUTYNIN CHLORIDE [Suspect]
     Dosage: 10 MG HS PO
     Route: 048
     Dates: start: 20071213, end: 20080108

REACTIONS (2)
  - AGITATION [None]
  - CONFUSIONAL STATE [None]
